FAERS Safety Report 5499457-7 (Version None)
Quarter: 2007Q4

REPORT INFORMATION
  Report Type: 
  Country: None (occurrence: None)
  Receive Date: 20071026
  Receipt Date: 20071017
  Transmission Date: 20080405
  Serious: Yes (Death, Life-Threatening, Hospitalization)
  Sender: FDA-Public Use
  Company Number: US-JNJFOC-20070700245

PATIENT
  Sex: Female
  Weight: 54.43 kg

DRUGS (7)
  1. REMICADE [Suspect]
     Route: 042
  2. REMICADE [Suspect]
     Route: 042
  3. REMICADE [Suspect]
     Route: 042
  4. REMICADE [Suspect]
     Indication: RHEUMATOID ARTHRITIS
     Route: 042
  5. LIPITOR [Concomitant]
     Indication: HYPERLIPIDAEMIA
  6. TYLENOL W/ CODEINE [Concomitant]
     Indication: PREMEDICATION
  7. ALLEGRA [Concomitant]
     Indication: PREMEDICATION

REACTIONS (1)
  - NON-SMALL CELL LUNG CANCER STAGE IV [None]
